FAERS Safety Report 25337639 (Version 1)
Quarter: 2025Q2

REPORT INFORMATION
  Report Type: Spontaneous
  Country: US (occurrence: US)
  Receive Date: 20250520
  Receipt Date: 20250520
  Transmission Date: 20250716
  Serious: No
  Sender: SEPTODONT
  Company Number: US-SEPTODONT-2024019114

PATIENT

DRUGS (1)
  1. SCANDONEST PLAIN [Suspect]
     Active Substance: MEPIVACAINE HYDROCHLORIDE
     Indication: Dental local anaesthesia
     Route: 065

REACTIONS (6)
  - Feeling abnormal [Unknown]
  - Visual impairment [Unknown]
  - Salivary hypersecretion [Unknown]
  - Hypoacusis [Unknown]
  - Tremor [Unknown]
  - Blood pressure decreased [Unknown]
